FAERS Safety Report 5456044-4 (Version None)
Quarter: 2007Q3

REPORT INFORMATION
  Report Type: 
  Country: None (occurrence: None)
  Receive Date: 20070918
  Receipt Date: 20061113
  Transmission Date: 20080115
  Serious: No
  Sender: FDA-Public Use
  Company Number: US-ASTRAZENECA-2006UW24224

PATIENT
  Sex: Female

DRUGS (4)
  1. SEROQUEL [Suspect]
     Route: 048
  2. ZOLOFT [Concomitant]
  3. BUSPAR [Concomitant]
  4. ADVIL LIQUI-GELS [Concomitant]
     Indication: PAIN

REACTIONS (6)
  - ANXIETY [None]
  - APATHY [None]
  - BLOOD CHOLESTEROL INCREASED [None]
  - BRADYPHRENIA [None]
  - FATIGUE [None]
  - FEAR [None]
